FAERS Safety Report 7716134-X (Version None)
Quarter: 2011Q3

REPORT INFORMATION
  Report Type: 
  Country: None (occurrence: None)
  Receive Date: 20110829
  Receipt Date: 20110825
  Transmission Date: 20111222
  Serious: No
  Sender: FDA-Public Use
  Company Number: US-B.I. PHARMACEUTICALS,INC./RIDGEFIELD-2011-BP-18963BP

PATIENT
  Age: 72 Year
  Sex: Female

DRUGS (3)
  1. COMBIVENT [Suspect]
     Indication: EMPHYSEMA
  2. SPIRIVA [Concomitant]
  3. ADVAIR DISKUS 100/50 [Concomitant]

REACTIONS (1)
  - DRUG INEFFECTIVE [None]
